FAERS Safety Report 25972295 (Version 1)
Quarter: 2025Q4

REPORT INFORMATION
  Report Type: Spontaneous
  Country: CN (occurrence: CN)
  Receive Date: 20251029
  Receipt Date: 20251029
  Transmission Date: 20260117
  Serious: Yes (Other)
  Sender: ROCHE
  Company Number: CN-ROCHE-10000415899

PATIENT
  Age: 56 Year
  Sex: Male

DRUGS (9)
  1. ATEZOLIZUMAB [Suspect]
     Active Substance: ATEZOLIZUMAB
     Indication: Hepatic cancer
     Route: 065
  2. BEVACIZUMAB [Suspect]
     Active Substance: BEVACIZUMAB
     Indication: Hepatic cancer
     Route: 065
  3. LENVATINIB [Concomitant]
     Active Substance: LENVATINIB
  4. REGORAFENIB [Concomitant]
     Active Substance: REGORAFENIB
     Route: 048
  5. SOFOSBUVIR [Concomitant]
     Active Substance: SOFOSBUVIR
  6. VELPATASVIR [Concomitant]
     Active Substance: VELPATASVIR
  7. TACROLIMUS [Concomitant]
     Active Substance: TACROLIMUS
  8. SIROLIMUS [Concomitant]
     Active Substance: SIROLIMUS
  9. MYCOPHENOLIC ACID [Concomitant]
     Active Substance: MYCOPHENOLIC ACID

REACTIONS (4)
  - Off label use [Unknown]
  - Pyrexia [Recovering/Resolving]
  - Rash [Recovering/Resolving]
  - Acute kidney injury [Unknown]
